FAERS Safety Report 8736637 (Version 6)
Quarter: 2012Q4

REPORT INFORMATION
  Report Type: 
  Country: AU (occurrence: AU)
  Receive Date: 20120822
  Receipt Date: 20121011
  Transmission Date: 20130627
  Serious: Yes (Other)
  Sender: FDA-Public Use
  Company Number: AU-PFIZER INC-2012199103

PATIENT
  Age: 78 Year
  Sex: Male
  Weight: 60.7 kg

DRUGS (5)
  1. TEMSIROLIMUS [Suspect]
     Indication: MANTLE CELL LYMPHOMA
     Dosage: 75 mg, weekly
     Route: 042
     Dates: start: 20120523, end: 20120612
  2. TEMSIROLIMUS [Suspect]
     Dosage: 50 mg, weekly
     Route: 042
     Dates: start: 2012, end: 20120713
  3. TEMSIROLIMUS [Suspect]
     Dosage: 25 mg, (unknown frequency)
     Route: 042
     Dates: start: 2012
  4. DESIPRAMINE [Suspect]
     Indication: MANTLE CELL LYMPHOMA
     Dosage: 50 mg, weekly
     Route: 048
     Dates: start: 20120516, end: 20120523
  5. LORATADINE [Concomitant]
     Indication: PRURITUS
     Dosage: UNK
     Route: 048
     Dates: start: 20120601

REACTIONS (1)
  - Pneumonitis [Recovered/Resolved]
